FAERS Safety Report 11831173 (Version 1)
Quarter: 2015Q4

REPORT INFORMATION
  Report Type: Spontaneous
  Country: US (occurrence: None)
  Receive Date: 20151211
  Receipt Date: 20151211
  Transmission Date: 20160305
  Serious: Yes (Death, Hospitalization)
  Sender: FDA-Public Use
  Company Number: None

PATIENT
  Age: 70 Year
  Sex: Male
  Weight: 83.69 kg

DRUGS (12)
  1. ADVAIR HFA [Concomitant]
     Active Substance: FLUTICASONE PROPIONATE\SALMETEROL XINAFOATE
  2. ABRAXANE [Suspect]
     Active Substance: PACLITAXEL
     Indication: PANCREATIC CARCINOMA
     Dosage: 150MG/M2 EVERY 14 DAYS IV
     Route: 042
     Dates: start: 20151014
  3. ALBUTEROL (PROVENTIL HFA; VENTOLIN HFA) [Concomitant]
  4. VITAMIN D3 [Concomitant]
     Active Substance: CHOLECALCIFEROL
  5. LEUCOVORIN. [Suspect]
     Active Substance: LEUCOVORIN
     Indication: PANCREATIC CARCINOMA
     Dosage: 400MG/M2 EVERY 14 DAYS IV
     Route: 042
     Dates: start: 20151014
  6. CHOLECALCIFEROL [Concomitant]
     Active Substance: CHOLECALCIFEROL
  7. ESCITALOPRAM OXALATE (LEXAPRO) [Concomitant]
  8. 5 FU [Suspect]
     Active Substance: FLUOROURACIL
     Indication: PANCREATIC CARCINOMA
     Dosage: 2400MG/M2 EVERY 14 DAYS CONTINUOUS IV INF OVER 48 HOURS
     Route: 042
     Dates: start: 20151014
  9. PANCRELIPASE (CREON) [Concomitant]
  10. OXALIPLATIN. [Suspect]
     Active Substance: OXALIPLATIN
     Indication: PANCREATIC CARCINOMA
     Dosage: 85MG/M2 EVERY 14 DAYS IV
     Route: 042
     Dates: start: 20151014
  11. ASPIRIN. [Concomitant]
     Active Substance: ASPIRIN
  12. ESOMEPRAZOLE MAGNESIUM (NEXIUM) [Concomitant]

REACTIONS (9)
  - Fatigue [None]
  - Platelet count decreased [None]
  - Emphysema [None]
  - Pneumonia [None]
  - Cardiac arrest [None]
  - Neuropathy peripheral [None]
  - Acute kidney injury [None]
  - Acute respiratory failure [None]
  - Haemoptysis [None]

NARRATIVE: CASE EVENT DATE: 20151102
